FAERS Safety Report 7903483-5 (Version None)
Quarter: 2011Q4

REPORT INFORMATION
  Report Type: 
  Country: None (occurrence: None)
  Receive Date: 20111109
  Receipt Date: 20111102
  Transmission Date: 20120403
  Serious: Yes (Life-Threatening, Other)
  Sender: FDA-Public Use
  Company Number: GB-SANOFI-AVENTIS-2011SA065650

PATIENT
  Sex: Male

DRUGS (12)
  1. ASPIRIN [Concomitant]
     Route: 065
  2. LIRAGLUTIDE [Concomitant]
     Route: 065
  3. RAMIPRIL [Concomitant]
     Route: 065
  4. RIFAMPIN [Suspect]
     Indication: POSTOPERATIVE WOUND INFECTION
     Route: 048
     Dates: start: 20110817, end: 20110926
  5. METFORMIN HCL [Concomitant]
     Route: 065
  6. ATORVASTATIN [Concomitant]
     Route: 065
  7. CITALOPRAM [Concomitant]
     Route: 065
  8. TEICOPLANIN SODIUM [Suspect]
     Indication: POSTOPERATIVE WOUND INFECTION
     Route: 042
     Dates: start: 20110908, end: 20110926
  9. AMLODIPINE [Concomitant]
     Route: 065
  10. ACETAMINOPHEN AND CODEINE PHOSPHATE [Concomitant]
     Route: 065
  11. PIPERACILLIN AND TAZOBACTAM [Concomitant]
     Route: 065
  12. GLICLAZIDE [Concomitant]
     Route: 065

REACTIONS (4)
  - NEUTROPENIA [None]
  - NEUTROPENIC SEPSIS [None]
  - THROMBOCYTOPENIA [None]
  - DISSEMINATED INTRAVASCULAR COAGULATION [None]
